FAERS Safety Report 5601052-3 (Version None)
Quarter: 2008Q1

REPORT INFORMATION
  Report Type: 
  Country: None (occurrence: None)
  Receive Date: 20080122
  Receipt Date: 20080122
  Transmission Date: 20080703
  Serious: No
  Sender: FDA-Public Use
  Company Number: None

PATIENT
  Age: 52 Year
  Sex: Male
  Weight: 89.8122 kg

DRUGS (1)
  1. LIPITOR [Suspect]
     Indication: CARDIAC DISORDER
     Dosage: ONE A DAY
     Dates: start: 20030527, end: 20050303

REACTIONS (4)
  - EXERCISE TOLERANCE DECREASED [None]
  - MEMORY IMPAIRMENT [None]
  - MYALGIA [None]
  - THINKING ABNORMAL [None]
